FAERS Safety Report 7640654-X (Version None)
Quarter: 2011Q3

REPORT INFORMATION
  Report Type: 
  Country: None (occurrence: None)
  Receive Date: 20110728
  Receipt Date: 20090706
  Transmission Date: 20111222
  Serious: Yes (Other)
  Sender: FDA-Public Use
  Company Number: US-BAYER-2011-021607

PATIENT
  Age: 72 Year
  Sex: Female
  Weight: 104.31 kg

DRUGS (15)
  1. ACETYLSALICYLIC ACID SRT [Concomitant]
     Dosage: UNK UNK, QD
     Route: 048
  2. ANCEF [Concomitant]
     Dosage: 1 G, UNK
     Route: 042
     Dates: start: 20030304
  3. TRASYLOL [Suspect]
     Indication: MITRAL VALVE REPLACEMENT
     Dosage: 200 ML, PUMP PRIME
     Route: 042
     Dates: start: 20030304, end: 20030304
  4. THYROXIN [Concomitant]
     Route: 048
  5. FENTANYL [Concomitant]
     Dosage: 100 MG, UNK
     Route: 042
     Dates: start: 20030304
  6. NIPRIDE [Concomitant]
     Dosage: UNK
     Route: 042
     Dates: start: 20030304
  7. AVAPRO [Concomitant]
     Dosage: 150 MG, TID
     Route: 048
  8. ATENOLOL [Concomitant]
     Route: 048
  9. LASIX [Concomitant]
     Route: 048
  10. CIMETIDINE [Concomitant]
     Route: 048
  11. VERSED [Concomitant]
     Dosage: 4 MG, UNK
     Route: 042
     Dates: start: 20030304
  12. TRASYLOL [Suspect]
     Dosage: 50 ML BOLUS
     Route: 042
     Dates: start: 20030304, end: 20030304
  13. TRASYLOL [Suspect]
     Dosage: 50 CC/HOUR INFUSION
     Route: 042
     Dates: start: 20030304, end: 20030304
  14. HEPARIN [Concomitant]
     Dosage: UNK
     Route: 042
     Dates: start: 20030304
  15. MORPHINE [Concomitant]
     Dosage: UNK
     Route: 042
     Dates: start: 20030304

REACTIONS (16)
  - CEREBROVASCULAR ACCIDENT [None]
  - EMOTIONAL DISTRESS [None]
  - FEAR [None]
  - PAIN [None]
  - MULTI-ORGAN FAILURE [None]
  - RENAL IMPAIRMENT [None]
  - STRESS [None]
  - ANXIETY [None]
  - ANHEDONIA [None]
  - BACK PAIN [None]
  - RENAL INJURY [None]
  - AFFECT LABILITY [None]
  - UNEVALUABLE EVENT [None]
  - RENAL FAILURE [None]
  - MUSCULAR WEAKNESS [None]
  - ABDOMINAL PAIN LOWER [None]
